FAERS Safety Report 9337357 (Version 2)
Quarter: 2013Q3

REPORT INFORMATION
  Report Type: Report from Study
  Country: US (occurrence: US)
  Receive Date: 20130607
  Receipt Date: 20130828
  Transmission Date: 20140515
  Serious: Yes (Hospitalization, Other)
  Sender: FDA-Public Use
  Company Number: US-ABBOTT-13P-163-1097817-00

PATIENT
  Age: 78 Year
  Sex: Female
  Weight: 63.56 kg

DRUGS (10)
  1. HUMIRA [Suspect]
     Indication: ANKYLOSING SPONDYLITIS
     Route: 058
     Dates: start: 200402, end: 2006
  2. HUMIRA [Suspect]
     Route: 058
     Dates: start: 2006, end: 2009
  3. HUMIRA [Suspect]
     Route: 058
     Dates: start: 201210
  4. TRAMADOL [Concomitant]
     Indication: ANKYLOSING SPONDYLITIS
     Route: 048
  5. ZYRTEC [Concomitant]
     Indication: SEASONAL ALLERGY
     Dosage: AS NEEDED
     Route: 048
  6. LEUCOVORIN [Concomitant]
     Indication: ANKYLOSING SPONDYLITIS
  7. METHOTREXATE [Concomitant]
     Indication: ANKYLOSING SPONDYLITIS
     Route: 048
  8. FOLTX [Concomitant]
     Indication: VITAMIN SUPPLEMENTATION
     Route: 048
  9. NEXIUM [Concomitant]
     Indication: GASTRIC DISORDER
     Route: 048
  10. NEXIUM [Concomitant]
     Indication: PROPHYLAXIS

REACTIONS (3)
  - Aortic valve disease [Recovered/Resolved]
  - Cardiac infection [Recovered/Resolved]
  - Cataract [Recovered/Resolved]
